FAERS Safety Report 9221742 (Version 1)
Quarter: 2013Q2

REPORT INFORMATION
  Report Type: Spontaneous
  Country: FR (occurrence: None)
  Receive Date: 20130408
  Receipt Date: 20130408
  Transmission Date: 20140414
  Serious: Yes (Hospitalization)
  Sender: FDA-Public Use
  Company Number: 221016

PATIENT
  Age: 77 Year
  Sex: Male

DRUGS (2)
  1. INNOHEP (TINZAPARIN SODIUM) [Suspect]
     Indication: DEEP VEIN THROMBOSIS
     Route: 058
     Dates: end: 20130131
  2. KARDEGIC [Suspect]

REACTIONS (2)
  - Peritoneal haematoma [None]
  - Renal failure acute [None]
